FAERS Safety Report 17158728 (Version 2)
Quarter: 2020Q1

REPORT INFORMATION
  Report Type: Spontaneous
  Country: JP (occurrence: JP)
  Receive Date: 20191216
  Receipt Date: 20200120
  Transmission Date: 20200409
  Serious: Yes (Other)
  Sender: FDA-Public Use
  Company Number: JP-BAYER-2019-225343

PATIENT
  Age: 39 Year
  Sex: Female

DRUGS (1)
  1. YAZ [Suspect]
     Active Substance: DROSPIRENONE\ETHINYL ESTRADIOL
     Indication: MENSTRUATION IRREGULAR
     Dosage: UNK
     Route: 048
     Dates: start: 2016

REACTIONS (6)
  - Product use in unapproved indication [None]
  - Contraindicated product administered [None]
  - Breast cancer female [None]
  - Labelled drug-disease interaction medication error [None]
  - Product monitoring error [None]
  - Off label use [None]

NARRATIVE: CASE EVENT DATE: 20190920
